FAERS Safety Report 20803228 (Version 1)
Quarter: 2022Q2

REPORT INFORMATION
  Report Type: Spontaneous
  Country: CO (occurrence: CO)
  Receive Date: 20220509
  Receipt Date: 20220509
  Transmission Date: 20220721
  Serious: Yes (Hospitalization)
  Sender: FDA-Public Use
  Company Number: CO-PFIZER INC-202200667863

PATIENT
  Age: 39 Year
  Sex: Male

DRUGS (7)
  1. XELJANZ XR [Suspect]
     Active Substance: TOFACITINIB CITRATE
     Indication: Rheumatoid arthritis
     Dosage: 11 MG, UNSPECIFIED FREQUENCY
     Route: 048
     Dates: start: 2019
  2. COVID-19 VACCINE NOS [Suspect]
     Active Substance: COVID-19 VACCINE NOS
     Indication: COVID-19 immunisation
     Dosage: DOSE NUMER UNKNOWN
  3. METHOTREXATE SODIUM [Suspect]
     Active Substance: METHOTREXATE SODIUM
     Dosage: UNK
  4. FOLIC ACID [Suspect]
     Active Substance: FOLIC ACID
     Dosage: UNK
  5. CALCIUM [Suspect]
     Active Substance: CALCIUM
     Dosage: UNK
  6. PREDNISOLONE [Suspect]
     Active Substance: PREDNISOLONE
     Dosage: UNK
  7. CHLOROQUINE [Suspect]
     Active Substance: CHLOROQUINE
     Dosage: UNK

REACTIONS (6)
  - Pain [Unknown]
  - Product administration interrupted [Unknown]
  - Illness [Unknown]
  - Bone pain [Unknown]
  - Arthralgia [Unknown]
  - Osteoarthritis [Unknown]

NARRATIVE: CASE EVENT DATE: 20220401
